FAERS Safety Report 7676564-1 (Version None)
Quarter: 2011Q3

REPORT INFORMATION
  Report Type: 
  Country: None (occurrence: None)
  Receive Date: 20110811
  Receipt Date: 20110801
  Transmission Date: 20111222
  Serious: Yes (Hospitalization)
  Sender: FDA-Public Use
  Company Number: CO-JNJFOC-20110801467

PATIENT
  Age: 67 Year
  Sex: Female

DRUGS (4)
  1. HYDROCHLOROTHIAZIDE [Concomitant]
  2. REMICADE [Suspect]
     Indication: PSORIASIS
     Route: 042
     Dates: start: 20110623
  3. LOVASTATIN [Concomitant]
  4. VERAPAMIL [Concomitant]

REACTIONS (2)
  - CHEST PAIN [None]
  - MALAISE [None]
